FAERS Safety Report 25353782 (Version 3)
Quarter: 2025Q3

REPORT INFORMATION
  Report Type: Spontaneous
  Country: EU (occurrence: EU)
  Receive Date: 20250523
  Receipt Date: 20250721
  Transmission Date: 20251021
  Serious: Yes (Other)
  Sender: MYLAN
  Company Number: EU-ASPEN-GLO2025PL003623

PATIENT
  Age: 36 Year
  Sex: Male

DRUGS (8)
  1. TRAMADOL [Interacting]
     Active Substance: TRAMADOL
     Indication: Toothache
  2. TRAMADOL [Interacting]
     Active Substance: TRAMADOL
     Route: 048
  3. TRAMADOL [Interacting]
     Active Substance: TRAMADOL
     Route: 048
  4. TRAMADOL [Interacting]
     Active Substance: TRAMADOL
  5. LEVOTHYROXINE SODIUM [Interacting]
     Active Substance: LEVOTHYROXINE SODIUM
     Indication: Hypothyroidism
     Dosage: 150 MICROGRAM, QD (150 UG/DAY)
  6. LEVOTHYROXINE SODIUM [Interacting]
     Active Substance: LEVOTHYROXINE SODIUM
     Dosage: 150 MICROGRAM, QD (150 UG/DAY)
     Route: 048
  7. LEVOTHYROXINE SODIUM [Interacting]
     Active Substance: LEVOTHYROXINE SODIUM
     Dosage: 150 MICROGRAM, QD (150 UG/DAY)
     Route: 048
  8. LEVOTHYROXINE SODIUM [Interacting]
     Active Substance: LEVOTHYROXINE SODIUM
     Dosage: 150 MICROGRAM, QD (150 UG/DAY)

REACTIONS (2)
  - Serotonin syndrome [Unknown]
  - Drug interaction [Unknown]
